FAERS Safety Report 25681819 (Version 5)
Quarter: 2025Q4

REPORT INFORMATION
  Report Type: Report from Study
  Country: US (occurrence: US)
  Receive Date: 20250814
  Receipt Date: 20251022
  Transmission Date: 20260117
  Serious: Yes (Other)
  Sender: MALLINCKRODT
  Company Number: US-MALLINCKRODT-MNK202504857

PATIENT
  Age: 58 Year
  Sex: Male
  Weight: 215 kg

DRUGS (5)
  1. CORTICOTROPIN [Suspect]
     Active Substance: CORTICOTROPIN
     Indication: Dermatomyositis
     Route: 058
  2. CORTICOTROPIN [Suspect]
     Active Substance: CORTICOTROPIN
     Indication: Dermatomyositis
     Dosage: UNKNOWN (DOSE REDUCED)
     Dates: start: 20250722, end: 2025
  3. CORTICOTROPIN [Suspect]
     Active Substance: CORTICOTROPIN
     Indication: Polymyositis
     Dates: start: 20250805
  4. CORTICOTROPIN [Suspect]
     Active Substance: CORTICOTROPIN
     Indication: Dermatomyositis
  5. CORTISONE [Concomitant]
     Active Substance: CORTISONE
     Dosage: UNKNOWN

REACTIONS (7)
  - Dermatomyositis [Unknown]
  - Polymyositis [Unknown]
  - Condition aggravated [Unknown]
  - Coronavirus infection [Unknown]
  - Somnolence [Unknown]
  - Depression [Unknown]
  - Hyperhidrosis [Unknown]

NARRATIVE: CASE EVENT DATE: 20250101
